FAERS Safety Report 7294620-7 (Version None)
Quarter: 2011Q1

REPORT INFORMATION
  Report Type: 
  Country: None (occurrence: None)
  Receive Date: 20110202
  Receipt Date: 20110119
  Transmission Date: 20110831
  Serious: Yes (Hospitalization)
  Sender: FDA-Public Use
  Company Number: DSU-2010-04993

PATIENT
  Age: 47 Year
  Sex: Male
  Weight: 82.1011 kg

DRUGS (2)
  1. AZOR [Suspect]
     Indication: HYPERTENSION
     Dosage: 10/40 MG (QD), PER ORAL
     Route: 048
     Dates: end: 20100101
  2. TRIBENZOR [Suspect]
     Indication: HYPERTENSION
     Dosage: 40/5/25 MG (QD), PER ORAL
     Route: 048
     Dates: start: 20100823

REACTIONS (1)
  - MYOCARDIAL INFARCTION [None]
